FAERS Safety Report 23793950 (Version 1)
Quarter: 2024Q2

REPORT INFORMATION
  Report Type: Spontaneous
  Country: FR (occurrence: FR)
  Receive Date: 20240429
  Receipt Date: 20240429
  Transmission Date: 20240716
  Serious: Yes (Other)
  Sender: FDA-Public Use
  Company Number: FR-MYLANLABS-2024M1038180

PATIENT
  Age: 62 Year
  Sex: Female

DRUGS (1)
  1. LYRICA [Suspect]
     Active Substance: PREGABALIN
     Indication: Neuralgia
     Dosage: 0.75 DOSAGE FORM, QD (EITHER 15ML OF PREGABALINE PER DAY)
     Route: 048

REACTIONS (5)
  - Drug dependence [Unknown]
  - Discomfort [Unknown]
  - Decreased appetite [Unknown]
  - Nausea [Unknown]
  - Product taste abnormal [Unknown]
